FAERS Safety Report 25265766 (Version 3)
Quarter: 2025Q2

REPORT INFORMATION
  Report Type: Spontaneous
  Country: PL (occurrence: PL)
  Receive Date: 20250503
  Receipt Date: 20250517
  Transmission Date: 20250717
  Serious: Yes (Death, Life-Threatening, Hospitalization, Other)
  Sender: AUROBINDO
  Company Number: PL-PFIZER INC-PV202500047279

PATIENT
  Age: 46 Year
  Sex: Male

DRUGS (4)
  1. FLUCONAZOLE [Suspect]
     Active Substance: FLUCONAZOLE
     Indication: Candida infection
     Route: 065
  2. CEFUROXIME [Suspect]
     Active Substance: CEFUROXIME
     Indication: Product used for unknown indication
     Route: 065
  3. METRONIDAZOLE [Suspect]
     Active Substance: METRONIDAZOLE
     Indication: Product used for unknown indication
     Route: 065
  4. BISEPTOL [Suspect]
     Active Substance: SULFAMETHOXAZOLE\TRIMETHOPRIM
     Indication: Stenotrophomonas infection
     Route: 065

REACTIONS (8)
  - Death [Fatal]
  - Arrhythmia [Unknown]
  - Coagulopathy [Unknown]
  - Anaemia [Unknown]
  - Hypotension [Unknown]
  - Hypotonia [Unknown]
  - Drug ineffective [Unknown]
  - Hospitalisation [Unknown]
